FAERS Safety Report 9838895 (Version 2)
Quarter: 2014Q2

REPORT INFORMATION
  Report Type: Spontaneous
  Country: GB (occurrence: None)
  Receive Date: 20140508
  Receipt Date: 20140508
  Transmission Date: 20141212
  Serious: Yes (Other)
  Sender: FDA-Public Use
  Company Number: AUR-APL-2014-00171

PATIENT
  Age: 38 Year
  Sex: Female
  Weight: 74 kg

DRUGS (1)
  1. SERTRALINE [Suspect]
     Indication: DEPRESSION
     Dosage: (50 MG), ORAL
     Route: 048
     Dates: start: 20010101

REACTIONS (5)
  - Foetal placental thrombosis [None]
  - Pre-eclampsia [None]
  - Small for dates baby [None]
  - Maternal drugs affecting foetus [None]
  - Exposure during pregnancy [None]
